FAERS Safety Report 9781851 (Version 1)
Quarter: 2013Q4

REPORT INFORMATION
  Report Type: Report from Study
  Country: AR (occurrence: AR)
  Receive Date: 20131225
  Receipt Date: 20131225
  Transmission Date: 20140711
  Serious: Yes (Other)
  Sender: FDA-Public Use
  Company Number: AR-ROCHE-1325195

PATIENT
  Age: 55 Year
  Sex: Female

DRUGS (1)
  1. LUCENTIS [Suspect]
     Indication: MACULOPATHY
     Route: 050
     Dates: start: 2011

REACTIONS (5)
  - Bronchitis [Recovering/Resolving]
  - Cataract [Unknown]
  - Eye haemorrhage [Recovered/Resolved]
  - Vision blurred [Unknown]
  - Drug ineffective [Unknown]
